FAERS Safety Report 6409005-2 (Version None)
Quarter: 2009Q4

REPORT INFORMATION
  Report Type: 
  Country: None (occurrence: None)
  Receive Date: 20091021
  Receipt Date: 20091012
  Transmission Date: 20100525
  Serious: Yes (Hospitalization)
  Sender: FDA-Public Use
  Company Number: US-JNJFOC-20091004509

PATIENT
  Sex: Male
  Weight: 72.85 kg

DRUGS (7)
  1. INFLIXIMAB [Suspect]
     Dosage: CONTINUOUSLY
     Route: 042
  2. INFLIXIMAB [Suspect]
     Indication: INFLAMMATORY BOWEL DISEASE
     Route: 042
  3. 5-AMINOSALICYLIC ACID [Concomitant]
     Indication: INFLAMMATORY BOWEL DISEASE
     Route: 048
  4. BENZOYL PEROXIDE [Concomitant]
  5. BACTRIM [Concomitant]
  6. FERROUS SULFATE TAB [Concomitant]
  7. ASACOL [Concomitant]

REACTIONS (1)
  - COLONIC STENOSIS [None]
